FAERS Safety Report 7434847-4 (Version None)
Quarter: 2011Q2

REPORT INFORMATION
  Report Type: 
  Country: None (occurrence: None)
  Receive Date: 20110425
  Receipt Date: 20110418
  Transmission Date: 20111010
  Serious: Yes (Other)
  Sender: FDA-Public Use
  Company Number: US-ROCHE-690149

PATIENT
  Sex: Female
  Weight: 76.7 kg

DRUGS (16)
  1. CELEBREX [Concomitant]
     Dates: start: 20070615
  2. SOMA [Concomitant]
     Dates: start: 20060206
  3. PREDNISONE [Concomitant]
     Route: 048
  4. CRESTOR [Concomitant]
     Dates: start: 20090217
  5. CALCIUM [Concomitant]
     Dates: start: 20010101
  6. CENTRUM [Concomitant]
     Dates: start: 20010101
  7. TOCILIZUMAB [Suspect]
     Indication: RHEUMATOID ARTHRITIS
     Dosage: LAST DOSE PRIOR TO SAE: 18 FEBRUARY 2010, TOTAL MONTHLY DOSE: 31.9 MG, FORM : INFUSION
     Route: 042
     Dates: start: 20070111, end: 20100304
  8. METANX [Concomitant]
     Dates: start: 20050727
  9. VIT C [Concomitant]
     Dosage: TDD: 1000 ME, QD
     Dates: start: 20010101
  10. TOCILIZUMAB [Suspect]
     Dosage: THE PATIENT WAS PREVIOUSLY ENROLLED IN STUDY WA 18062 AND RECEIVED TOCILIZUMAB 4MG/KG
     Route: 042
  11. ACIPHEX [Concomitant]
     Dates: start: 20070129
  12. METHOTREXATE [Concomitant]
     Dosage: DRUG: MTX.
     Dates: start: 20080630, end: 20100313
  13. PREDNISOLONE [Concomitant]
     Dates: start: 20071130
  14. ESTRADIOL [Concomitant]
     Dates: start: 19910101, end: 20100313
  15. LUNESTA [Concomitant]
     Dates: start: 20060301
  16. LORTAB [Concomitant]
     Dates: start: 20060301

REACTIONS (1)
  - BREAST CANCER IN SITU [None]
